FAERS Safety Report 19962140 (Version 1)
Quarter: 2021Q4

REPORT INFORMATION
  Report Type: Spontaneous
  Country: US (occurrence: US)
  Receive Date: 20211018
  Receipt Date: 20211018
  Transmission Date: 20220303
  Serious: No
  Sender: FDA-Public Use
  Company Number: ENDG21-03150

PATIENT
  Sex: Female

DRUGS (1)
  1. BENZTROPINE MESYLATE [Suspect]
     Active Substance: BENZTROPINE MESYLATE
     Indication: Tremor
     Dosage: 1 MG, UNKNOWN
     Route: 065
     Dates: start: 2021, end: 20210430

REACTIONS (2)
  - Increased appetite [Recovered/Resolved]
  - Weight increased [Unknown]
